FAERS Safety Report 18382247 (Version 1)
Quarter: 2020Q4

REPORT INFORMATION
  Report Type: Spontaneous
  Country: US (occurrence: US)
  Receive Date: 20201014
  Receipt Date: 20201014
  Transmission Date: 20210114
  Serious: No
  Sender: FDA-Public Use
  Company Number: US-SA-2020SA280616

PATIENT

DRUGS (1)
  1. LANTUS SOLOSTAR [Suspect]
     Active Substance: INSULIN GLARGINE
     Indication: TYPE 2 DIABETES MELLITUS
     Dosage: 32 IU, BID
     Route: 065
     Dates: start: 2005

REACTIONS (4)
  - Fall [Unknown]
  - Inappropriate schedule of product administration [Unknown]
  - Joint dislocation [Unknown]
  - Joint range of motion decreased [Unknown]
